FAERS Safety Report 5496708-X (Version None)
Quarter: 2007Q4

REPORT INFORMATION
  Report Type: 
  Country: None (occurrence: None)
  Receive Date: 20071023
  Receipt Date: 20071011
  Transmission Date: 20080405
  Serious: Yes (Hospitalization, Disabling)
  Sender: FDA-Public Use
  Company Number: GXKR2007GB08801

PATIENT
  Age: 28 Year
  Sex: Female
  Weight: 56 kg

DRUGS (3)
  1. PAROXETINE HCL [Suspect]
     Indication: DEPRESSIVE SYMPTOM
     Dosage: 20 MG, QD, ORAL
     Route: 048
     Dates: start: 20070828, end: 20070914
  2. DIAZEPAM [Concomitant]
  3. CONTRACEPTIVES NOS (NO INGREDIENTS/SUBSTANCES) [Concomitant]

REACTIONS (15)
  - AGITATION [None]
  - ANXIETY [None]
  - CHILLS [None]
  - CONFUSIONAL STATE [None]
  - EYE MOVEMENT DISORDER [None]
  - FLUSHING [None]
  - HALLUCINATION [None]
  - HYPERACUSIS [None]
  - HYPERHIDROSIS [None]
  - HYPERREFLEXIA [None]
  - LOSS OF CONSCIOUSNESS [None]
  - MYOCLONUS [None]
  - PHOTOPHOBIA [None]
  - TREMOR [None]
  - VISUAL DISTURBANCE [None]
